FAERS Safety Report 20020948 (Version 4)
Quarter: 2021Q4

REPORT INFORMATION
  Report Type: Report from Study
  Country: KR (occurrence: None)
  Receive Date: 20211101
  Receipt Date: 20211115
  Transmission Date: 20220303
  Serious: Yes (Hospitalization)
  Sender: FDA-Public Use
  Company Number: KR-Eisai Medical Research-EC-2021-100753

PATIENT
  Age: 54 Year
  Sex: Male
  Weight: 60.2 kg

DRUGS (24)
  1. LENVATINIB [Suspect]
     Active Substance: LENVATINIB
     Indication: Non-small cell lung cancer metastatic
     Dosage: STARTING DOSE 20 MG, FLUCTUATED DOSAGE
     Route: 048
     Dates: start: 20201203, end: 20210922
  2. LENVATINIB [Suspect]
     Active Substance: LENVATINIB
     Route: 048
     Dates: start: 20210923, end: 20210927
  3. LENVATINIB [Suspect]
     Active Substance: LENVATINIB
     Route: 048
     Dates: start: 20211002, end: 20211013
  4. LENVATINIB [Suspect]
     Active Substance: LENVATINIB
     Route: 048
     Dates: start: 20211020
  5. PEMBROLIZUMAB [Suspect]
     Active Substance: PEMBROLIZUMAB
     Indication: Non-small cell lung cancer metastatic
     Route: 041
     Dates: start: 20201203, end: 20210902
  6. PEMBROLIZUMAB [Suspect]
     Active Substance: PEMBROLIZUMAB
     Route: 041
     Dates: start: 20210923, end: 20210923
  7. PEMBROLIZUMAB [Suspect]
     Active Substance: PEMBROLIZUMAB
     Route: 041
     Dates: start: 20211020, end: 20211020
  8. FOLIC ACID [Concomitant]
     Active Substance: FOLIC ACID
     Dates: start: 20201217
  9. NORVASC [Concomitant]
     Active Substance: AMLODIPINE BESYLATE
     Dates: start: 20201224
  10. OXYCODONE HYDROCHLORIDE [Concomitant]
     Active Substance: OXYCODONE HYDROCHLORIDE
     Dates: start: 20210114
  11. URSODIOL [Concomitant]
     Active Substance: URSODIOL
     Dates: start: 20210422
  12. HARMONILAN [Concomitant]
     Dates: start: 20210513
  13. COUGH SYRUP [Concomitant]
     Active Substance: DEXTROMETHORPHAN HYDROBROMIDE\GUAIFENESIN
     Dates: start: 20201217
  14. MEGACE F [Concomitant]
     Dates: start: 20210520
  15. KANARB [Concomitant]
     Dates: start: 20210715
  16. LEVOTHYROXINE SODIUM [Concomitant]
     Active Substance: LEVOTHYROXINE SODIUM
     Dates: start: 20210722, end: 20210915
  17. LEVOTHYROXINE SODIUM [Concomitant]
     Active Substance: LEVOTHYROXINE SODIUM
     Dates: start: 20210916
  18. NALOXONE HYDROCHLORIDE\OXYCODONE HYDROCHLORIDE [Concomitant]
     Active Substance: NALOXONE HYDROCHLORIDE\OXYCODONE HYDROCHLORIDE
     Dates: start: 20210902
  19. TYLENOL 8HR [Concomitant]
     Active Substance: ACETAMINOPHEN
     Dates: start: 20210913
  20. DEXAMETHASONE [Concomitant]
     Active Substance: DEXAMETHASONE
     Dates: start: 20210916, end: 20210916
  21. CARVEDILOL [Concomitant]
     Active Substance: CARVEDILOL
     Dates: start: 20210916
  22. BANAN [Concomitant]
     Active Substance: CEFPODOXIME PROXETIL
     Dates: start: 20210916, end: 20210923
  23. ELDOCAINE CATAPLASMA [Concomitant]
     Dates: start: 20210923
  24. AUGMENTIN [Concomitant]
     Active Substance: AMOXICILLIN\CLAVULANATE POTASSIUM
     Dates: start: 20210923, end: 20210927

REACTIONS (2)
  - Neutrophil count decreased [Recovered/Resolved]
  - Subcutaneous abscess [Recovering/Resolving]

NARRATIVE: CASE EVENT DATE: 20210924
